FAERS Safety Report 18969809 (Version 1)
Quarter: 2021Q1

REPORT INFORMATION
  Report Type: Spontaneous
  Country: HR (occurrence: HR)
  Receive Date: 20210304
  Receipt Date: 20210304
  Transmission Date: 20210420
  Serious: Yes (Other)
  Sender: FDA-Public Use
  Company Number: HR-ASTRAZENECA-2021A084080

PATIENT
  Sex: Female

DRUGS (2)
  1. HELEX [Suspect]
     Active Substance: ALPRAZOLAM
     Dosage: 2 BLISTERA HELEX A 0.5 MG DAILY
     Route: 048
     Dates: start: 20210107, end: 20210107
  2. SEROQUEL [Suspect]
     Active Substance: QUETIAPINE FUMARATE
     Route: 048
     Dates: start: 20210107, end: 20210107

REACTIONS (3)
  - Suicide attempt [Unknown]
  - Intentional overdose [Unknown]
  - No adverse event [Unknown]

NARRATIVE: CASE EVENT DATE: 20210107
